FAERS Safety Report 5683505-5 (Version None)
Quarter: 2008Q1

REPORT INFORMATION
  Report Type: 
  Country: None (occurrence: None)
  Receive Date: 20080326
  Receipt Date: 20080314
  Transmission Date: 20080703
  Serious: Yes (Hospitalization)
  Sender: FDA-Public Use
  Company Number: 2008BI001182

PATIENT
  Sex: Female

DRUGS (1)
  1. AVONEX [Suspect]
     Indication: MULTIPLE SCLEROSIS
     Dosage: 30 UG;QW;IM
     Route: 030
     Dates: start: 20060801, end: 20080101

REACTIONS (8)
  - AFFECTIVE DISORDER [None]
  - ASTHMA [None]
  - DEPRESSION [None]
  - ESSENTIAL HYPERTENSION [None]
  - MENTAL DISORDER [None]
  - OPTIC NEURITIS [None]
  - OPTIC NEUROPATHY [None]
  - PAIN [None]
